FAERS Safety Report 16021130 (Version 1)
Quarter: 2019Q1

REPORT INFORMATION
  Report Type: Spontaneous
  Country: FR (occurrence: FR)
  Receive Date: 20190301
  Receipt Date: 20190301
  Transmission Date: 20190418
  Serious: Yes (Hospitalization)
  Sender: FDA-Public Use
  Company Number: FR-ACCORD-109883

PATIENT
  Age: 81 Year
  Sex: Male

DRUGS (9)
  1. LERCANIDIPINE [Concomitant]
     Active Substance: LERCANIDIPINE
  2. FLECAINE [Concomitant]
     Active Substance: FLECAINIDE
  3. REPAGLINIDE. [Concomitant]
     Active Substance: REPAGLINIDE
  4. PERINDOPRIL/PERINDOPRIL ERBUMINE [Concomitant]
  5. FLUOROURACILE ACCORD [Suspect]
     Active Substance: FLUOROURACIL
     Indication: RECTAL CANCER METASTATIC
     Route: 042
     Dates: start: 20180807, end: 20180807
  6. KARDEGIC [Concomitant]
     Active Substance: ASPIRIN DL-LYSINE
     Dosage: STRENGTH: 75MG
  7. LEVEMIR [Concomitant]
     Active Substance: INSULIN DETEMIR
  8. ELIQUIS [Concomitant]
     Active Substance: APIXABAN
     Dosage: STRENGTH:2.5 MG
  9. JANUVIA [Concomitant]
     Active Substance: SITAGLIPTIN PHOSPHATE
     Dosage: STRENGTH: 50MG

REACTIONS (1)
  - Acute coronary syndrome [Recovering/Resolving]

NARRATIVE: CASE EVENT DATE: 20180808
